FAERS Safety Report 25229844 (Version 3)
Quarter: 2025Q2

REPORT INFORMATION
  Report Type: Spontaneous
  Country: GB (occurrence: GB)
  Receive Date: 20250423
  Receipt Date: 20250610
  Transmission Date: 20250717
  Serious: No
  Sender: PFIZER
  Company Number: GB-PFIZER INC-PV202500043562

PATIENT
  Age: 14 Year
  Sex: Male

DRUGS (1)
  1. GENOTROPIN [Suspect]
     Active Substance: SOMATROPIN
     Dosage: 1.2 MG, DAILY
     Route: 058

REACTIONS (2)
  - Drug dose omission by device [Unknown]
  - Device defective [Unknown]
